FAERS Safety Report 12693340 (Version 1)
Quarter: 2016Q3

REPORT INFORMATION
  Report Type: Spontaneous
  Country: DE (occurrence: DE)
  Receive Date: 20160829
  Receipt Date: 20160829
  Transmission Date: 20161109
  Serious: Yes (Hospitalization)
  Sender: FDA-Public Use
  Company Number: DE-PFIZER INC-2016401600

PATIENT
  Age: 61 Year
  Sex: Male
  Weight: 70 kg

DRUGS (3)
  1. CHAMPIX [Suspect]
     Active Substance: VARENICLINE TARTRATE
     Indication: SMOKING CESSATION THERAPY
     Dosage: ^STARTER KIT^
     Route: 048
     Dates: start: 20160801, end: 20160811
  2. FOSTER [Concomitant]
     Active Substance: BECLOMETHASONE\FORMOTEROL
     Indication: CHRONIC OBSTRUCTIVE PULMONARY DISEASE
     Dosage: 1 DF, 2 X
     Route: 055
  3. CANDESARTAN ABZ [Concomitant]
     Indication: HYPERTENSION
     Dosage: 1 DF, 1 X (8 MG)
     Route: 048

REACTIONS (4)
  - Fear of death [Unknown]
  - Palpitations [Unknown]
  - Hyperhidrosis [Unknown]
  - Panic attack [Unknown]

NARRATIVE: CASE EVENT DATE: 20160810
